FAERS Safety Report 7328304-3 (Version None)
Quarter: 2011Q1

REPORT INFORMATION
  Report Type: 
  Country: None (occurrence: None)
  Receive Date: 20110303
  Receipt Date: 20110217
  Transmission Date: 20110831
  Serious: Yes (Other)
  Sender: FDA-Public Use
  Company Number: GB-MYLANLABS-2011S1003458

PATIENT
  Age: 75 Year
  Sex: Female
  Weight: 54 kg

DRUGS (4)
  1. RAMIPRIL [Concomitant]
     Indication: HYPERTENSION
  2. XARELTO [Suspect]
     Indication: THROMBOSIS PROPHYLAXIS
  3. AMLODIPINE [Suspect]
     Indication: HYPERTENSION
  4. XARELTO [Suspect]
     Indication: KNEE ARTHROPLASTY

REACTIONS (1)
  - DEEP VEIN THROMBOSIS [None]
